FAERS Safety Report 4649460-1 (Version None)
Quarter: 2005Q2

REPORT INFORMATION
  Report Type: 
  Country: None (occurrence: None)
  Receive Date: 20050427
  Receipt Date: 20050223
  Transmission Date: 20051028
  Serious: Yes (Death, Hospitalization)
  Sender: FDA-Public Use
  Company Number: 2005-UK-00312UK

PATIENT
  Sex: Male

DRUGS (4)
  1. SPIRIVA [Suspect]
     Dosage: IH
     Route: 055
     Dates: end: 20040101
  2. SALBUTAMOL (SALBUTAMOL) (NR) [Suspect]
  3. BECLOMETASONE (BECLOMETASONE) (NR) [Suspect]
  4. QUININE SULFATE [Suspect]

REACTIONS (1)
  - DEATH [None]
